FAERS Safety Report 9542258 (Version 1)
Quarter: 2013Q3

REPORT INFORMATION
  Report Type: Spontaneous
  Country: US (occurrence: None)
  Receive Date: 20130918
  Receipt Date: 20130918
  Transmission Date: 20140515
  Serious: No
  Sender: FDA-Public Use
  Company Number: 2013CT000064

PATIENT
  Sex: Male

DRUGS (2)
  1. KORLYM [Suspect]
     Indication: PITUITARY-DEPENDENT CUSHING^S SYNDROME
  2. SPIRONOLACTONE [Concomitant]

REACTIONS (2)
  - Dehydration [None]
  - Feeling abnormal [None]
